FAERS Safety Report 5657948-X (Version None)
Quarter: 2008Q1

REPORT INFORMATION
  Report Type: 
  Country: None (occurrence: None)
  Receive Date: 20080305
  Receipt Date: 20080217
  Transmission Date: 20080703
  Serious: Yes (Other)
  Sender: FDA-Public Use
  Company Number: 2008S1000036

PATIENT
  Age: 9 Day
  Sex: Male
  Weight: 0.6 kg

DRUGS (6)
  1. NITRIC OXIDE [Suspect]
     Indication: LUNG DISORDER
     Dosage: 5 PPM; CONT; INH
     Route: 055
     Dates: start: 20070830, end: 20070921
  2. NITRIC OXIDE [Suspect]
     Indication: PROPHYLAXIS
     Dosage: 5 PPM; CONT; INH
     Route: 055
     Dates: start: 20070830, end: 20070921
  3. FLUTICASONE [Concomitant]
  4. ALBUTEROL [Concomitant]
  5. IPRATROPIUM BROMIDE [Concomitant]
  6. INDOMETHACIN [Concomitant]

REACTIONS (3)
  - INTESTINAL PERFORATION [None]
  - NO THERAPEUTIC RESPONSE [None]
  - PATENT DUCTUS ARTERIOSUS [None]
